FAERS Safety Report 4601150-7 (Version None)
Quarter: 2005Q1

REPORT INFORMATION
  Report Type: 
  Country: None (occurrence: None)
  Receive Date: 20050307
  Receipt Date: 20050307
  Transmission Date: 20050727
  Serious: Yes (Death)
  Sender: FDA-Public Use
  Company Number: None

PATIENT
  Sex: Female
  Weight: 68 kg

DRUGS (10)
  1. HEPARIN [Suspect]
     Indication: CARDIAC OPERATION
     Dosage: 20,000 UNITS   ONCE    INTRAVENOU
     Route: 042
     Dates: start: 20050224, end: 20050224
  2. DOPAMINE [Concomitant]
  3. DOBUTAMINE HCL [Concomitant]
  4. INSULIN [Concomitant]
  5. VERSED [Concomitant]
  6. COMBIVENT [Concomitant]
  7. AZATHIOPRINE [Concomitant]
  8. FAMOTIDINE [Concomitant]
  9. PROCRIT [Concomitant]
  10. MORPHINE [Concomitant]

REACTIONS (7)
  - CARDIOGENIC SHOCK [None]
  - HEPARIN-INDUCED THROMBOCYTOPENIA [None]
  - HEPATIC FAILURE [None]
  - INTRACARDIAC THROMBUS [None]
  - MECHANICAL COMPLICATION OF IMPLANT [None]
  - POST PROCEDURAL COMPLICATION [None]
  - RENAL FAILURE [None]
